FAERS Safety Report 24878519 (Version 1)
Quarter: 2025Q1

REPORT INFORMATION
  Report Type: Spontaneous
  Country: GB (occurrence: GB)
  Receive Date: 20250123
  Receipt Date: 20250123
  Transmission Date: 20250409
  Serious: Yes (Hospitalization, Other)
  Sender: SAMSUNG BIOEPIS
  Company Number: None

PATIENT
  Age: 46 Year
  Sex: Male

DRUGS (1)
  1. INFLIXIMAB [Suspect]
     Active Substance: INFLIXIMAB
     Indication: Crohn^s disease
     Dates: start: 202206, end: 202409

REACTIONS (5)
  - Pyrexia [Unknown]
  - Malaise [Unknown]
  - Tuberculosis [Recovering/Resolving]
  - Lethargy [Unknown]
  - Abscess [Unknown]
